FAERS Safety Report 7018431-2 (Version None)
Quarter: 2010Q3

REPORT INFORMATION
  Report Type: 
  Country: None (occurrence: None)
  Receive Date: 20100924
  Receipt Date: 20100912
  Transmission Date: 20110219
  Serious: Yes (Other)
  Sender: FDA-Public Use
  Company Number: 1000016334

PATIENT
  Age: 23 Year
  Sex: Female
  Weight: 55 kg

DRUGS (3)
  1. ESCITALOPRAM OXALATE [Suspect]
     Dosage: (200 MG, ONCE), ORAL
     Route: 048
     Dates: start: 20100911, end: 20100911
  2. DOXEPIN (DOXEPIN) (25 MILLIGRAM, TABLETS) [Suspect]
     Dosage: (425 MG, ONCE), ORAL
     Route: 048
     Dates: start: 20100911, end: 20100911
  3. ALCOHOL (ETHANOL) [Suspect]
     Dosage: (ONCE), ORAL
     Route: 048
     Dates: start: 20100911, end: 20100911

REACTIONS (4)
  - ALCOHOL POISONING [None]
  - MULTIPLE DRUG OVERDOSE INTENTIONAL [None]
  - SOMNOLENCE [None]
  - SUICIDE ATTEMPT [None]
